FAERS Safety Report 24404774 (Version 1)
Quarter: 2024Q4

REPORT INFORMATION
  Report Type: Spontaneous
  Country: US (occurrence: None)
  Receive Date: 20241004
  Receipt Date: 20241004
  Transmission Date: 20250115
  Serious: Yes (Death)
  Sender: Public
  Company Number: None

PATIENT
  Age: 94 Year
  Sex: Male

DRUGS (1)
  1. SAMSCA [Suspect]
     Active Substance: TOLVAPTAN
     Indication: Hyponatraemia
     Dosage: FREQUENCY : DAILY;?
     Route: 048
     Dates: start: 20221202, end: 20240926

REACTIONS (1)
  - Death [None]

NARRATIVE: CASE EVENT DATE: 20240926
